FAERS Safety Report 22040222 (Version 1)
Quarter: 2023Q1

REPORT INFORMATION
  Report Type: Spontaneous
  Country: US (occurrence: US)
  Receive Date: 20230227
  Receipt Date: 20230227
  Transmission Date: 20230418
  Serious: No
  Sender: FDA-Public Use
  Company Number: US-PFIZER INC-202300076059

PATIENT
  Age: 74 Year
  Sex: Female
  Weight: 58.97 kg

DRUGS (3)
  1. IBRANCE [Suspect]
     Active Substance: PALBOCICLIB
     Indication: Breast cancer metastatic
     Dosage: 125 MG, CYCLIC, (ONE TABLET DAILY FOR 21 DAYS, THEN 7 DAYS OFF)
     Dates: start: 202207
  2. XGEVA [Concomitant]
     Active Substance: DENOSUMAB
     Dosage: 1 SHOT, EVERY 3 MONTHS
  3. FULVESTRANT [Concomitant]
     Active Substance: FULVESTRANT
     Indication: Bone cancer
     Dosage: 2 SHOTS IN THE BUTTOCK EVERY 28 DAYS

REACTIONS (4)
  - Headache [Not Recovered/Not Resolved]
  - Red blood cell count decreased [Unknown]
  - White blood cell count decreased [Unknown]
  - Alopecia [Not Recovered/Not Resolved]

NARRATIVE: CASE EVENT DATE: 20221101
